FAERS Safety Report 8217801-4 (Version None)
Quarter: 2012Q1

REPORT INFORMATION
  Report Type: 
  Country: None (occurrence: None)
  Receive Date: 20120319
  Receipt Date: 20120307
  Transmission Date: 20120608
  Serious: Yes (Hospitalization)
  Sender: FDA-Public Use
  Company Number: US-JNJFOC-20120208369

PATIENT
  Sex: Female
  Weight: 68.58 kg

DRUGS (5)
  1. OMEPRAZOLE [Concomitant]
     Indication: GASTROOESOPHAGEAL REFLUX DISEASE
     Route: 065
     Dates: start: 20070101
  2. SERTRALINE HYDROCHLORIDE [Concomitant]
     Indication: DEPRESSION
     Route: 065
     Dates: start: 20050101
  3. REMICADE [Suspect]
     Indication: CROHN'S DISEASE
     Dosage: INDUCTION DOSE
     Route: 042
     Dates: start: 20120102
  4. TRAZODONE HCL [Concomitant]
     Indication: INSOMNIA
     Route: 065
     Dates: start: 20050101
  5. MERCAPTOPURINE [Concomitant]
     Indication: CROHN'S DISEASE
     Route: 065
     Dates: start: 20100101

REACTIONS (5)
  - ABASIA [None]
  - DEHYDRATION [None]
  - SERUM SICKNESS [None]
  - CONSTIPATION [None]
  - CONTRAINDICATION TO VACCINATION [None]
